FAERS Safety Report 7504003-X (Version None)
Quarter: 2011Q2

REPORT INFORMATION
  Report Type: 
  Country: None (occurrence: None)
  Receive Date: 20110518
  Receipt Date: 20110511
  Transmission Date: 20111010
  Serious: Yes (Life-Threatening, Hospitalization)
  Sender: FDA-Public Use
  Company Number: WAES 1105USA02114

PATIENT
  Age: 23 Month
  Sex: Male
  Weight: 10.8863 kg

DRUGS (17)
  1. PEGFILGRASTIM [Concomitant]
  2. CISPLATIN [Suspect]
     Indication: MEDULLOBLASTOMA
     Dosage: 3.5 MG/KG, DAILY IV
     Route: 042
     Dates: start: 20110312, end: 20110312
  3. CISPLATIN [Suspect]
     Indication: MEDULLOBLASTOMA
     Dosage: 3.5 MG/KG, DAILY IV
     Route: 042
     Dates: start: 20110404, end: 20110404
  4. CISPLATIN [Suspect]
     Indication: MEDULLOBLASTOMA
     Dosage: 3.5 MG/KG, DAILY IV
     Route: 042
     Dates: start: 20110430, end: 20110430
  5. GRANULOCYTE COLONY STIMULATING FUNK [Concomitant]
  6. ETOPOSIDE [Suspect]
     Indication: MEDULLOBLASTOMA
     Dosage: 2.5 MG, KG, DAILY, IV
     Route: 042
     Dates: start: 20110312, end: 20110314
  7. ETOPOSIDE [Suspect]
     Indication: MEDULLOBLASTOMA
     Dosage: 2.5 MG, KG, DAILY, IV
     Route: 042
     Dates: start: 20010430, end: 20110502
  8. ETOPOSIDE [Suspect]
     Indication: MEDULLOBLASTOMA
     Dosage: 2.5 MG, KG, DAILY, IV
     Route: 042
     Dates: start: 20110404, end: 20110406
  9. CAP VORINOSTAT [Suspect]
     Indication: MEDULLOBLASTOMA
     Dosage: 230 MG, DAILY, PO
     Route: 048
     Dates: start: 20110401, end: 20110404
  10. CAP VORINOSTAT [Suspect]
     Indication: MEDULLOBLASTOMA
     Dosage: 230 MG, DAILY, PO
     Route: 048
     Dates: start: 20110427, end: 20110430
  11. ZANTAC [Concomitant]
  12. DECADRON [Suspect]
     Indication: PRODUCT USED FOR UNKNOWN INDICATION
  13. ISOTRETINOIN [Concomitant]
  14. CYCLOPHOSPHAMIDE [Suspect]
     Indication: MEDULLOBLASTOMA
     Dosage: 60 MG, KG, DAILY, IV
     Route: 042
     Dates: start: 20110405, end: 20110406
  15. CYCLOPHOSPHAMIDE [Suspect]
     Indication: MEDULLOBLASTOMA
     Dosage: 60 MG, KG, DAILY, IV
     Route: 042
     Dates: start: 20110313, end: 20110314
  16. CYCLOPHOSPHAMIDE [Suspect]
     Indication: MEDULLOBLASTOMA
     Dosage: 60 MG, KG, DAILY, IV
     Route: 042
     Dates: start: 20110501, end: 20110506
  17. VINCRISTINE SULFATE [Concomitant]

REACTIONS (16)
  - BACTERIAL TEST POSITIVE [None]
  - FEBRILE NEUTROPENIA [None]
  - HYPOKALAEMIA [None]
  - PNEUMONIA [None]
  - VASCULAR ACCESS COMPLICATION [None]
  - DEHYDRATION [None]
  - PANCYTOPENIA [None]
  - VOMITING [None]
  - DIARRHOEA [None]
  - SEPTIC SHOCK [None]
  - SUBCLAVIAN VEIN THROMBOSIS [None]
  - DECREASED ACTIVITY [None]
  - ELECTROLYTE IMBALANCE [None]
  - DEVICE RELATED INFECTION [None]
  - MUCOSAL INFLAMMATION [None]
  - LUNG INFECTION [None]
